FAERS Safety Report 23132656 (Version 1)
Quarter: 2023Q4

REPORT INFORMATION
  Report Type: Spontaneous
  Country: CN (occurrence: CN)
  Receive Date: 20231101
  Receipt Date: 20231101
  Transmission Date: 20240110
  Serious: Yes (Other)
  Sender: FDA-Public Use
  Company Number: CN-AUROBINDO-AUR-APL-2023-065710

PATIENT
  Age: 85 Year
  Sex: Female

DRUGS (1)
  1. PANTOPRAZOLE SODIUM [Suspect]
     Active Substance: PANTOPRAZOLE SODIUM
     Indication: Gastrointestinal haemorrhage
     Dosage: 40 MILLIGRAM, ONCE A DAY
     Route: 065
     Dates: start: 20231009, end: 20231016

REACTIONS (1)
  - Nephritis [Unknown]

NARRATIVE: CASE EVENT DATE: 20231015
